FAERS Safety Report 13653481 (Version 1)
Quarter: 2017Q2

REPORT INFORMATION
  Report Type: Spontaneous
  Country: US (occurrence: US)
  Receive Date: 20170614
  Receipt Date: 20170614
  Transmission Date: 20170830
  Serious: No
  Sender: FDA-Public Use
  Company Number: US-ROCHE-1306227

PATIENT
  Age: 80 Year
  Sex: Male

DRUGS (6)
  1. AVASTIN [Suspect]
     Active Substance: BEVACIZUMAB
     Indication: COLORECTAL CANCER METASTATIC
     Route: 065
  2. XELODA [Suspect]
     Active Substance: CAPECITABINE
     Indication: COLORECTAL CANCER
     Dosage: 2800 MG AFTER BREAKFAST AND ANOTHER 2800 MG AFTER DINNER
     Route: 065
  3. 5-FU [Suspect]
     Active Substance: FLUOROURACIL
     Indication: COLORECTAL CANCER METASTATIC
     Route: 065
  4. CPT-11 [Suspect]
     Active Substance: IRINOTECAN
     Indication: COLORECTAL CANCER METASTATIC
     Route: 065
  5. XELODA [Suspect]
     Active Substance: CAPECITABINE
     Indication: COLORECTAL CANCER METASTATIC
     Dosage: 1500 MG AFTER BREAKFAST AND 1500 MG AFTER DINNER
     Route: 065
  6. ERBITUX [Suspect]
     Active Substance: CETUXIMAB
     Indication: COLORECTAL CANCER METASTATIC
     Route: 065

REACTIONS (14)
  - Overdose [Unknown]
  - Sneezing [Unknown]
  - Colectomy [Unknown]
  - Lung neoplasm [Not Recovered/Not Resolved]
  - Pain [Unknown]
  - Muscle twitching [Unknown]
  - Headache [Unknown]
  - Back pain [Recovered/Resolved]
  - Liver disorder [Unknown]
  - Malaise [Recovered/Resolved]
  - Diarrhoea [Unknown]
  - Cough [Unknown]
  - Nausea [Unknown]
  - Central nervous system lesion [Not Recovered/Not Resolved]
